FAERS Safety Report 5401253-3 (Version None)
Quarter: 2007Q3

REPORT INFORMATION
  Report Type: 
  Country: None (occurrence: None)
  Receive Date: 20070731
  Receipt Date: 20070724
  Transmission Date: 20080115
  Serious: Yes (Life-Threatening)
  Sender: FDA-Public Use
  Company Number: FR-AVENTIS-200711848FR

PATIENT
  Age: 68 Year
  Sex: Female
  Weight: 61 kg

DRUGS (16)
  1. TAVANIC [Suspect]
     Indication: LUNG INFECTION
     Route: 048
     Dates: start: 20070505, end: 20070509
  2. KETEK [Suspect]
     Indication: LUNG INFECTION
     Route: 048
     Dates: start: 20070419, end: 20070424
  3. AUGMENTIN '125' [Suspect]
     Indication: LUNG INFECTION
     Route: 048
     Dates: start: 20070430, end: 20070506
  4. ROCEPHIN [Suspect]
     Indication: LUNG INFECTION
     Route: 030
     Dates: start: 20070505, end: 20070509
  5. BREXIN                             /00500404/ [Suspect]
     Route: 048
     Dates: start: 20070403, end: 20070509
  6. NOVATREX                           /00113801/ [Suspect]
     Route: 048
     Dates: end: 20070509
  7. TAREG [Concomitant]
     Route: 048
  8. SYMBICORT [Concomitant]
  9. BRONCHODUAL [Concomitant]
  10. ALPRAZOLAM [Concomitant]
  11. EFFEXOR [Concomitant]
  12. DI-ANTALVIC                        /00220901/ [Concomitant]
  13. NEURONTIN [Concomitant]
  14. OGAST [Concomitant]
  15. PULMICORT [Concomitant]
  16. AMOXICILLIN [Concomitant]
     Dates: start: 20070410, end: 20070417

REACTIONS (2)
  - PANCYTOPENIA [None]
  - RENAL FAILURE [None]
